FAERS Safety Report 22309991 (Version 1)
Quarter: 2023Q2

REPORT INFORMATION
  Report Type: Spontaneous
  Country: US (occurrence: None)
  Receive Date: 20230510
  Receipt Date: 20230510
  Transmission Date: 20230721
  Serious: No
  Sender: FDA-Public Use
  Company Number: None

PATIENT
  Age: 67 Year
  Sex: Female
  Weight: 67.05 kg

DRUGS (1)
  1. AIMOVIG [Suspect]
     Active Substance: ERENUMAB-AOOE
     Indication: Migraine
     Dosage: OTHER FREQUENCY : EVERY 30 DAYS;?
     Route: 058
     Dates: start: 20230428, end: 20230428

REACTIONS (4)
  - Nausea [None]
  - Vomiting [None]
  - Dizziness [None]
  - Headache [None]

NARRATIVE: CASE EVENT DATE: 20230428
